FAERS Safety Report 8958102 (Version 1)
Quarter: 2012Q4

REPORT INFORMATION
  Report Type: 
  Country: DE (occurrence: DE)
  Receive Date: 20121211
  Receipt Date: 20121211
  Transmission Date: 20130627
  Serious: Yes (Death, Hospitalization)
  Sender: FDA-Public Use
  Company Number: PHHY2012DE113653

PATIENT
  Age: 22 Year
  Sex: Male

DRUGS (1)
  1. PREDNISOLONE [Suspect]
     Indication: POLYARTHRITIS

REACTIONS (8)
  - Cardiac failure [Fatal]
  - Epidural lipomatosis [Recovering/Resolving]
  - Osteoporosis [Recovering/Resolving]
  - Paraparesis [Recovering/Resolving]
  - Spastic paraplegia [Recovering/Resolving]
  - Sensory loss [Recovering/Resolving]
  - Fat tissue increased [Unknown]
  - Urinary retention [Unknown]
